FAERS Safety Report 4779028-8 (Version None)
Quarter: 2005Q3

REPORT INFORMATION
  Report Type: 
  Country: None (occurrence: None)
  Receive Date: 20050923
  Receipt Date: 20050906
  Transmission Date: 20060218
  Serious: Yes (Disabling)
  Sender: FDA-Public Use
  Company Number: AU_050308438

PATIENT
  Age: 38 Year
  Sex: Male

DRUGS (3)
  1. GEMZAR [Suspect]
     Indication: ADENOCARCINOMA PANCREAS
     Dates: start: 20050202
  2. OXYCONTIN [Concomitant]
  3. DEXAMETHASONE [Concomitant]

REACTIONS (3)
  - DEMYELINATION [None]
  - NEUROPATHY PERIPHERAL [None]
  - PARANEOPLASTIC SYNDROME [None]
